FAERS Safety Report 7979184-4 (Version None)
Quarter: 2011Q4

REPORT INFORMATION
  Report Type: 
  Country: None (occurrence: None)
  Receive Date: 20111214
  Receipt Date: 20111207
  Transmission Date: 20120403
  Serious: Yes (Death, Hospitalization, Other)
  Sender: FDA-Public Use
  Company Number: JP-JNJFOC-20110107925

PATIENT
  Sex: Female
  Weight: 41 kg

DRUGS (84)
  1. LAXOBERON [Concomitant]
     Route: 048
     Dates: start: 20091228, end: 20091228
  2. MORPHINE HYDROCHLORIDE [Concomitant]
     Indication: CANCER PAIN
     Route: 058
     Dates: start: 20100222, end: 20100222
  3. MORPHINE HYDROCHLORIDE [Concomitant]
     Route: 058
     Dates: start: 20100218, end: 20100218
  4. BETAMETHASONE [Concomitant]
     Route: 048
     Dates: start: 20090926, end: 20091014
  5. MUCOSTA [Concomitant]
     Route: 048
     Dates: start: 20090821, end: 20090824
  6. DEPAS [Concomitant]
     Indication: INSOMNIA
     Route: 048
     Dates: start: 20100209, end: 20100220
  7. ACETAMINOPHEN [Concomitant]
     Route: 048
     Dates: start: 20090924, end: 20090927
  8. BETAMETHASONE [Concomitant]
     Indication: PRODUCT USED FOR UNKNOWN INDICATION
     Route: 042
     Dates: start: 20100222, end: 20100222
  9. OMEPRAZOLE [Concomitant]
     Route: 042
     Dates: start: 20091226, end: 20091226
  10. MORPHINE HYDROCHLORIDE [Concomitant]
     Route: 058
     Dates: start: 20091228, end: 20091228
  11. ASVERIN [Concomitant]
     Indication: CONSTIPATION
     Route: 048
     Dates: end: 20091014
  12. CODEINE PHOSPHATE [Concomitant]
     Dosage: DOSAGE FORM: PERORAL MEDICINE
     Route: 048
     Dates: start: 20090831, end: 20090902
  13. NEUTROGIN [Concomitant]
     Indication: NEUTROPHIL COUNT DECREASED
     Route: 058
     Dates: start: 20090821, end: 20090918
  14. PRIMPERAN TAB [Concomitant]
     Indication: VOMITING
     Route: 042
     Dates: start: 20090912, end: 20090912
  15. SELBEX [Concomitant]
     Indication: GASTRITIS
     Route: 048
     Dates: start: 20090821, end: 20090825
  16. BETAMETHASONE [Concomitant]
     Route: 042
     Dates: start: 20100218, end: 20100218
  17. LANSOPRAZOLE [Concomitant]
     Route: 048
     Dates: start: 20100216, end: 20100218
  18. ACRINOL [Concomitant]
     Route: 065
     Dates: start: 20100226, end: 20100301
  19. DOXORUBICIN HCL [Suspect]
     Indication: OVARIAN CANCER RECURRENT
     Dosage: CYCLE 2
     Route: 042
     Dates: start: 20090903, end: 20090903
  20. MIDAZOLAM HCL [Concomitant]
     Route: 030
     Dates: start: 20100226, end: 20100228
  21. MORPHINE HYDROCHLORIDE [Concomitant]
     Route: 058
     Dates: start: 20090923, end: 20091008
  22. SOLU-CORTEF [Concomitant]
     Indication: PALMAR-PLANTAR ERYTHRODYSAESTHESIA SYNDROME
     Route: 042
     Dates: start: 20090731, end: 20090903
  23. FAMOTIDINE [Concomitant]
     Indication: GASTRITIS
     Route: 048
     Dates: start: 20090825, end: 20091225
  24. APHTASOLON [Concomitant]
     Indication: STOMATITIS
     Route: 049
     Dates: start: 20090928, end: 20091008
  25. BETAMETHASONE [Concomitant]
     Route: 042
     Dates: start: 20090926, end: 20091008
  26. CODEINE PHOSPHATE [Concomitant]
     Route: 048
     Dates: start: 20091228, end: 20100220
  27. BISOLVON [Concomitant]
     Route: 048
     Dates: start: 20091228, end: 20100218
  28. MORPHINE HYDROCHLORIDE [Concomitant]
     Route: 058
     Dates: start: 20100301, end: 20100301
  29. MORPHINE HYDROCHLORIDE [Concomitant]
     Route: 058
     Dates: start: 20100210, end: 20100217
  30. CODEINE PHOSPHATE [Concomitant]
     Indication: CANCER PAIN
     Route: 048
     Dates: start: 20090826, end: 20090830
  31. ACETAMINOPHEN [Concomitant]
     Indication: CANCER PAIN
     Route: 048
     Dates: start: 20090928, end: 20100208
  32. CODEINE PHOSPHATE [Concomitant]
     Route: 048
     Dates: start: 20091002, end: 20091008
  33. MUCODYNE [Concomitant]
     Route: 048
     Dates: start: 20100215, end: 20100218
  34. MOBIC [Concomitant]
     Route: 048
     Dates: start: 20100217, end: 20100220
  35. SANDOSTATIN [Concomitant]
     Route: 058
     Dates: start: 20100218, end: 20100218
  36. VOLTAREN [Concomitant]
     Indication: CANCER PAIN
     Route: 054
     Dates: start: 20090918, end: 20090924
  37. MIDAZOLAM HCL [Concomitant]
     Route: 030
     Dates: start: 20100222, end: 20100225
  38. MORPHINE HYDROCHLORIDE [Concomitant]
     Route: 058
     Dates: start: 20100210, end: 20100217
  39. MORPHINE HYDROCHLORIDE [Concomitant]
     Route: 058
     Dates: start: 20100223, end: 20100228
  40. PRIMPERAN TAB [Concomitant]
     Indication: CONSTIPATION
     Route: 048
     Dates: start: 20090826, end: 20100208
  41. DECADRON [Concomitant]
     Indication: VOMITING
     Route: 042
     Dates: start: 20090731, end: 20090903
  42. DECADRON [Concomitant]
     Indication: PALMAR-PLANTAR ERYTHRODYSAESTHESIA SYNDROME
     Route: 042
     Dates: start: 20090731, end: 20090903
  43. FILGRASTIM [Concomitant]
     Indication: NEUTROPHIL COUNT DECREASED
     Route: 058
     Dates: start: 20090921, end: 20090922
  44. PROCHLORPERAZINE [Concomitant]
     Route: 048
     Dates: start: 20090921, end: 20090927
  45. FENTANYL-100 [Concomitant]
     Indication: CANCER PAIN
     Route: 062
     Dates: start: 20090914, end: 20091225
  46. BETAMETHASONE [Concomitant]
     Route: 042
     Dates: start: 20100223, end: 20100301
  47. OMEPRAZOLE [Concomitant]
     Route: 042
     Dates: start: 20100209, end: 20100209
  48. SELTOUCH [Concomitant]
     Route: 061
     Dates: start: 20100210, end: 20100301
  49. RISPERDAL [Concomitant]
     Route: 048
     Dates: start: 20100217, end: 20100220
  50. SCOPOLAMINE [Concomitant]
     Route: 042
     Dates: start: 20100209, end: 20100209
  51. LEVOFLOXACIN [Concomitant]
     Indication: PYELONEPHRITIS
     Route: 048
     Dates: start: 20090912, end: 20090915
  52. MORPHINE HYDROCHLORIDE [Concomitant]
     Route: 058
     Dates: start: 20091225, end: 20091227
  53. MORPHINE HYDROCHLORIDE [Concomitant]
     Route: 058
     Dates: start: 20100218, end: 20100218
  54. CODEINE PHOSPHATE [Concomitant]
     Dosage: DOSAGE FORM: PERORAL MEDICINE
     Route: 048
     Dates: start: 20090918, end: 20090924
  55. GASCON [Concomitant]
     Indication: CONSTIPATION
     Route: 048
     Dates: start: 20090911, end: 20091225
  56. BETAMETHASONE [Concomitant]
     Route: 042
     Dates: start: 20100210, end: 20100218
  57. OMEPRAZOLE [Concomitant]
     Route: 042
     Dates: start: 20091228, end: 20091228
  58. OMEPRAZOLE [Concomitant]
     Route: 042
     Dates: start: 20100210, end: 20100211
  59. ALOSENN [Concomitant]
     Route: 048
     Dates: start: 20091227, end: 20091227
  60. ETODOLAC [Concomitant]
     Route: 048
     Dates: start: 20100209, end: 20100217
  61. SANDOSTATIN [Concomitant]
     Route: 058
     Dates: start: 20100208, end: 20100208
  62. SANDOSTATIN [Concomitant]
     Route: 058
     Dates: start: 20100209, end: 20100217
  63. DOXORUBICIN HCL [Suspect]
     Dosage: CYCLE 1
     Route: 042
     Dates: start: 20090731, end: 20090731
  64. MORPHINE HYDROCHLORIDE [Concomitant]
     Route: 058
     Dates: start: 20100301, end: 20100301
  65. POLARAMINE [Concomitant]
     Indication: PALMAR-PLANTAR ERYTHRODYSAESTHESIA SYNDROME
     Route: 042
     Dates: start: 20090731, end: 20090903
  66. MUCOSTA [Concomitant]
     Indication: GASTRITIS
     Route: 048
     Dates: start: 20090825, end: 20091225
  67. LOXONIN [Concomitant]
     Indication: CANCER PAIN
     Route: 048
     Dates: start: 20091002, end: 20100208
  68. LOXONIN [Concomitant]
     Route: 048
     Dates: start: 20090825, end: 20090907
  69. OMEPRAZOLE [Concomitant]
     Route: 042
     Dates: start: 20091227, end: 20091227
  70. ZOLPIDEM [Concomitant]
     Route: 048
     Dates: start: 20100212, end: 20100212
  71. TRAZODONE HYDROCHLORIDE [Concomitant]
     Route: 048
     Dates: start: 20100212, end: 20100220
  72. BARAMYCIN [Concomitant]
     Route: 061
     Dates: start: 20100225, end: 20100301
  73. SANDOSTATIN [Concomitant]
     Route: 058
     Dates: start: 20100223, end: 20100301
  74. ZOSYN [Concomitant]
     Indication: PYELONEPHRITIS
     Route: 042
     Dates: start: 20090914, end: 20091002
  75. LAXOBERON [Concomitant]
     Route: 048
     Dates: start: 20100223, end: 20100223
  76. MORPHINE HYDROCHLORIDE [Concomitant]
     Route: 058
     Dates: start: 20100218, end: 20100218
  77. MORPHINE HYDROCHLORIDE [Concomitant]
     Route: 058
     Dates: start: 20100222, end: 20100222
  78. MAGMITT [Concomitant]
     Indication: CONSTIPATION
     Route: 048
     Dates: end: 20090924
  79. CODEINE PHOSPHATE [Concomitant]
     Dosage: DOSAGE FORM: PERORAL MEDICINE
     Route: 048
     Dates: start: 20090911, end: 20090917
  80. DEPAS [Concomitant]
     Route: 048
     Dates: start: 20090903, end: 20090917
  81. GRANISETRON HCL [Concomitant]
     Indication: VOMITING
     Route: 041
     Dates: start: 20090731, end: 20090903
  82. SODIUM GUALENATE [Concomitant]
     Indication: STOMATITIS
     Route: 049
     Dates: start: 20090923, end: 20090923
  83. BETAMETHASONE [Concomitant]
     Route: 042
     Dates: start: 20091228, end: 20091228
  84. TELEMINSOFT [Concomitant]
     Route: 054
     Dates: start: 20100223, end: 20100223

REACTIONS (5)
  - OVARIAN CANCER RECURRENT [None]
  - SCHIZOPHRENIA [None]
  - PYELONEPHRITIS [None]
  - WHITE BLOOD CELL COUNT DECREASED [None]
  - ILEUS [None]
